FAERS Safety Report 26109572 (Version 1)
Quarter: 2025Q4

REPORT INFORMATION
  Report Type: Spontaneous
  Country: EU (occurrence: EU)
  Receive Date: 20251201
  Receipt Date: 20251201
  Transmission Date: 20260118
  Serious: Yes (Hospitalization)
  Sender: MYLAN
  Company Number: None

PATIENT
  Age: 80 Year
  Sex: Female

DRUGS (2)
  1. METFORMIN [Interacting]
     Active Substance: METFORMIN HYDROCHLORIDE
     Indication: Diabetes mellitus
     Dosage: 1000 MILLIGRAM, BID (TWICE DAILY)
     Dates: end: 20230104
  2. DICLOFENAC [Interacting]
     Active Substance: DICLOFENAC
     Indication: Back pain
     Dosage: 50 MILLIGRAM, BID (TWICE DAILY)
     Dates: start: 20221226, end: 20230102

REACTIONS (4)
  - Lactic acidosis [Recovered/Resolved]
  - Drug level above therapeutic [Recovered/Resolved]
  - Renal failure [Recovered/Resolved]
  - Drug interaction [Recovered/Resolved]

NARRATIVE: CASE EVENT DATE: 20221226
